FAERS Safety Report 15179639 (Version 1)
Quarter: 2018Q3

REPORT INFORMATION
  Report Type: Spontaneous
  Country: US (occurrence: US)
  Receive Date: 20180723
  Receipt Date: 20180723
  Transmission Date: 20181010
  Serious: No
  Sender: FDA-Public Use
  Company Number: US-TEVA-787037ACC

PATIENT
  Sex: Male

DRUGS (3)
  1. NICOTINE LOZENGE [Suspect]
     Active Substance: NICOTINE
     Indication: SMOKING CESSATION THERAPY
     Route: 048
  2. HABITROL [Suspect]
     Active Substance: NICOTINE
     Indication: SMOKING CESSATION THERAPY
     Dosage: 21 MILLIGRAM DAILY;
     Route: 062
     Dates: start: 20170705
  3. NICOTINE GUM [Suspect]
     Active Substance: NICOTINE
     Indication: SMOKING CESSATION THERAPY
     Route: 048

REACTIONS (1)
  - Abdominal pain upper [Unknown]
